FAERS Safety Report 7308765-6 (Version None)
Quarter: 2011Q1

REPORT INFORMATION
  Report Type: 
  Country: None (occurrence: None)
  Receive Date: 20110223
  Receipt Date: 20110214
  Transmission Date: 20110831
  Serious: Yes (Other)
  Sender: FDA-Public Use
  Company Number: PHHO2011US03018

PATIENT
  Sex: Female
  Weight: 56 kg

DRUGS (3)
  1. CALCIUM [Concomitant]
     Dosage: UNK
  2. ZOMETA [Suspect]
     Indication: MULTIPLE MYELOMA
     Dosage: 4 MG, QMO
     Route: 042
     Dates: start: 20100215
  3. VITAMIN D [Concomitant]

REACTIONS (2)
  - SEQUESTRECTOMY [None]
  - OSTEONECROSIS OF JAW [None]
